FAERS Safety Report 14577117 (Version 1)
Quarter: 2018Q1

REPORT INFORMATION
  Report Type: Spontaneous
  Country: US (occurrence: US)
  Receive Date: 20180227
  Receipt Date: 20180227
  Transmission Date: 20180509
  Serious: No
  Sender: FDA-Public Use
  Company Number: US-TEVA-2018-US-860023

PATIENT
  Age: 74 Year
  Sex: Female

DRUGS (1)
  1. TAMOXIFEN CITRATE. [Suspect]
     Active Substance: TAMOXIFEN CITRATE
     Indication: BREAST CANCER
     Dates: start: 2018

REACTIONS (6)
  - Arthralgia [Unknown]
  - Abdominal discomfort [Unknown]
  - Visual impairment [Unknown]
  - Alopecia [Unknown]
  - Hypokinesia [Unknown]
  - Lymphadenopathy [Unknown]
